FAERS Safety Report 12692667 (Version 1)
Quarter: 2016Q3

REPORT INFORMATION
  Report Type: Spontaneous
  Country: US (occurrence: US)
  Receive Date: 20160829
  Receipt Date: 20160829
  Transmission Date: 20161109
  Serious: No
  Sender: FDA-Public Use
  Company Number: US-AJANTA PHARMA USA INC.-1056817

PATIENT
  Age: 68 Year
  Sex: Female
  Weight: 83.64 kg

DRUGS (2)
  1. RISPERIDONE. [Suspect]
     Active Substance: RISPERIDONE
     Indication: BIPOLAR DISORDER
     Route: 048
     Dates: end: 20160320
  2. VITAMIN E [Suspect]
     Active Substance: .ALPHA.-TOCOPHEROL

REACTIONS (8)
  - Breast engorgement [Not Recovered/Not Resolved]
  - Breast mass [Not Recovered/Not Resolved]
  - Asthenia [Unknown]
  - Breast pain [Recovering/Resolving]
  - Hypersensitivity [Unknown]
  - Throat irritation [Unknown]
  - Pain [Not Recovered/Not Resolved]
  - Nausea [Not Recovered/Not Resolved]

NARRATIVE: CASE EVENT DATE: 20160319
